FAERS Safety Report 20488827 (Version 1)
Quarter: 2022Q1

REPORT INFORMATION
  Report Type: Spontaneous
  Country: US (occurrence: US)
  Receive Date: 20220218
  Receipt Date: 20220218
  Transmission Date: 20220423
  Serious: No
  Sender: FDA-Public Use
  Company Number: US-SA-SAC20220211000067

PATIENT
  Sex: Female

DRUGS (8)
  1. DUPIXENT [Suspect]
     Active Substance: DUPILUMAB
     Indication: Dermatitis atopic
     Route: 058
     Dates: start: 20210511
  2. CELECOXIB [Concomitant]
     Active Substance: CELECOXIB
  3. FLUTICASONE [Concomitant]
     Active Substance: FLUTICASONE
  4. LISINOPRIL [Concomitant]
     Active Substance: LISINOPRIL
  5. MONTELUKAST SODIUM [Concomitant]
     Active Substance: MONTELUKAST SODIUM
  6. RYBELSUS [Concomitant]
     Active Substance: SEMAGLUTIDE
  7. YUVAFEM [Concomitant]
     Active Substance: ESTRADIOL HEMIHYDRATE
  8. METOPROLOL [Concomitant]
     Active Substance: METOPROLOL

REACTIONS (1)
  - Oral herpes [Unknown]
